FAERS Safety Report 8443972-0 (Version None)
Quarter: 2012Q2

REPORT INFORMATION
  Report Type: 
  Country: None (occurrence: None)
  Receive Date: 20120618
  Receipt Date: 20120611
  Transmission Date: 20120825
  Serious: Yes (Hospitalization)
  Sender: FDA-Public Use
  Company Number: PHHY2012FR051051

PATIENT
  Age: 41 Year
  Sex: Male

DRUGS (6)
  1. LITHIUM CARBONATE [Concomitant]
     Dosage: UNK UKN, UNK
  2. CLOZAPINE [Suspect]
     Dosage: 550 MG, QD (550 MG IN A SINGLE DOSE )
  3. TRANXENE [Concomitant]
     Dosage: UNK UKN, UNK
  4. LAMICTAL [Concomitant]
     Dosage: 25 MG, UNK
  5. ABILIFY [Concomitant]
     Dosage: UNK UKN, UNK
  6. IMOVANE [Concomitant]
     Dosage: 7.5 MG, UNK

REACTIONS (3)
  - THINKING ABNORMAL [None]
  - ANXIETY [None]
  - TOXICITY TO VARIOUS AGENTS [None]
